FAERS Safety Report 16083870 (Version 2)
Quarter: 2019Q2

REPORT INFORMATION
  Report Type: Spontaneous
  Country: US (occurrence: US)
  Receive Date: 20190318
  Receipt Date: 20190403
  Transmission Date: 20190711
  Serious: No
  Sender: FDA-Public Use
  Company Number: US-MERZ NORTH AMERICA, INC.-19MRZ-00105

PATIENT
  Age: 52 Year
  Sex: Female

DRUGS (2)
  1. SODIUM CHLORITE [Suspect]
     Active Substance: SODIUM CHLORITE
     Indication: SKIN COSMETIC PROCEDURE
     Dates: start: 20190308, end: 20190308
  2. XEOMIN [Suspect]
     Active Substance: INCOBOTULINUMTOXINA
     Indication: SKIN COSMETIC PROCEDURE
     Dosage: XEOMIN RECONSTITUTED WITH HYPERTONIC SALINE
     Route: 058
     Dates: start: 20190308, end: 20190308

REACTIONS (3)
  - Injection site pain [Recovered/Resolved]
  - Product preparation error [Recovered/Resolved]
  - Emotional distress [Recovered/Resolved]

NARRATIVE: CASE EVENT DATE: 20190308
